FAERS Safety Report 12266286 (Version 1)
Quarter: 2016Q2

REPORT INFORMATION
  Report Type: Spontaneous
  Country: US (occurrence: None)
  Receive Date: 20160413
  Receipt Date: 20160413
  Transmission Date: 20160815
  Serious: Yes (Other)
  Sender: FDA-Public Use
  Company Number: None

PATIENT
  Age: 80 Year
  Sex: Male
  Weight: 96.4 kg

DRUGS (1)
  1. OCTAGAM IMMUNE GLOBULIN (HUMAN) [Suspect]
     Active Substance: HUMAN IMMUNOGLOBULIN G
     Indication: HYPOGAMMAGLOBULINAEMIA
     Dosage: 50 G Q4W INTRAVENOUS DRIP
     Route: 041
     Dates: start: 20160408, end: 20160411

REACTIONS (3)
  - Infusion related reaction [None]
  - Urticaria [None]
  - Product quality issue [None]

NARRATIVE: CASE EVENT DATE: 20160411
